FAERS Safety Report 7993181-4 (Version None)
Quarter: 2011Q4

REPORT INFORMATION
  Report Type: 
  Country: None (occurrence: None)
  Receive Date: 20111219
  Receipt Date: 20110404
  Transmission Date: 20120403
  Serious: No
  Sender: FDA-Public Use
  Company Number: US-ASTRAZENECA-2011SE18890

PATIENT
  Age: 56 Year
  Sex: Male
  Weight: 65.8 kg

DRUGS (6)
  1. LORATADINE [Concomitant]
  2. VENTOLIN [Concomitant]
  3. CRESTOR [Suspect]
     Dosage: 5 MG EVERY THREE DAYS
     Route: 048
     Dates: start: 20110301, end: 20110301
  4. INHALED ASMANEX [Concomitant]
  5. CRESTOR [Suspect]
     Route: 048
     Dates: start: 20100901, end: 20101201
  6. CRESTOR [Suspect]
     Route: 048

REACTIONS (4)
  - MUSCLE SPASMS [None]
  - PAIN [None]
  - MYALGIA [None]
  - ASTHENIA [None]
